FAERS Safety Report 9156169 (Version 1)
Quarter: 2013Q1

REPORT INFORMATION
  Report Type: Spontaneous
  Country: US (occurrence: US)
  Receive Date: 20130123
  Receipt Date: 20130123
  Transmission Date: 20140127
  Serious: No
  Sender: FDA-Public Use
  Company Number: US-BRACCO-006540

PATIENT
  Age: 68 Year
  Sex: Female

DRUGS (10)
  1. FUROSEMIDE [Concomitant]
  2. DIAZEPAM [Concomitant]
  3. GLIMEPIRIDE [Concomitant]
  4. EXFORGE [Concomitant]
  5. MULTIHANCE [Suspect]
     Indication: ASTHENIA
     Route: 042
     Dates: start: 20110706, end: 20110706
  6. MULTIHANCE [Suspect]
     Indication: NUCLEAR MAGNETIC RESONANCE IMAGING BRAIN
     Route: 042
     Dates: start: 20110706, end: 20110706
  7. MULTIHANCE [Suspect]
     Indication: PAIN
     Route: 042
     Dates: start: 20110706, end: 20110706
  8. MULTIHANCE [Suspect]
     Indication: CONVULSION
     Route: 042
     Dates: start: 20110706, end: 20110706
  9. SIMVASTATIN [Concomitant]
  10. LEVETIRACETAM [Concomitant]

REACTIONS (1)
  - Drug ineffective [Unknown]
